FAERS Safety Report 7591068-2 (Version None)
Quarter: 2011Q3

REPORT INFORMATION
  Report Type: 
  Country: None (occurrence: None)
  Receive Date: 20110705
  Receipt Date: 20110628
  Transmission Date: 20111222
  Serious: Yes (Hospitalization)
  Sender: FDA-Public Use
  Company Number: FR-MERCK-1106FRA00120

PATIENT
  Age: 65 Year
  Sex: Female

DRUGS (1)
  1. JANUMET [Suspect]
     Indication: TYPE 2 DIABETES MELLITUS
     Route: 048
     Dates: start: 20110501, end: 20110601

REACTIONS (5)
  - PYREXIA [None]
  - TREMOR [None]
  - OEDEMA PERIPHERAL [None]
  - CHILLS [None]
  - PAIN [None]
